FAERS Safety Report 7533119-7 (Version None)
Quarter: 2011Q2

REPORT INFORMATION
  Report Type: 
  Country: None (occurrence: None)
  Receive Date: 20110608
  Receipt Date: 20020129
  Transmission Date: 20111010
  Serious: Yes (Death)
  Sender: FDA-Public Use
  Company Number: PHBS2002CA01488

PATIENT
  Sex: Male

DRUGS (2)
  1. EXELON [Suspect]
     Dosage: 6 MG, BID
     Dates: start: 20010815, end: 20011125
  2. EXELON [Suspect]
     Dates: start: 20010127

REACTIONS (1)
  - PULMONARY FIBROSIS [None]
